FAERS Safety Report 17728902 (Version 1)
Quarter: 2020Q2

REPORT INFORMATION
  Report Type: Spontaneous
  Country: DK (occurrence: DK)
  Receive Date: 20200430
  Receipt Date: 20200430
  Transmission Date: 20200714
  Serious: Yes (Hospitalization)
  Sender: FDA-Public Use
  Company Number: DK-TEVA-2020-DK-1228883

PATIENT
  Age: 75 Year
  Sex: Female

DRUGS (24)
  1. COMBIVENT [Concomitant]
     Active Substance: ALBUTEROL SULFATE\IPRATROPIUM BROMIDE
     Indication: BRONCHOSPASM
     Dosage: STRENGTH: 2.5 + 0.5MG / RETAIN,25 ML
     Route: 055
     Dates: start: 20200329
  2. BETNOVAT [Concomitant]
     Active Substance: BETAMETHASONE
     Indication: ECZEMA
     Dosage: 1 DOSAGE FORMS
     Route: 003
     Dates: start: 20171127
  3. OXYCODONHYDROCHLORID ^ACTAVIS^ [Concomitant]
     Active Substance: OXYCODONE HYDROCHLORIDE
     Indication: PAIN
     Dosage: 5MG,START DATE UNKNOWN, BUT AT LEAST SINCE MAY 2018
     Route: 048
  4. GABAPENTIN. [Concomitant]
     Active Substance: GABAPENTIN
     Indication: NEURALGIA
     Dosage: 300MG
     Route: 048
     Dates: start: 20180228
  5. PANTOPRAZOLE [Concomitant]
     Active Substance: PANTOPRAZOLE
     Indication: PROPHYLAXIS AGAINST GASTROINTESTINAL ULCER
     Dosage: 20MG
     Route: 048
     Dates: start: 20170603
  6. CIRCADIN [Concomitant]
     Active Substance: MELATONIN
     Indication: INSOMNIA
     Dosage: 4 MG
     Route: 048
     Dates: start: 20181114
  7. DULOXETINE. [Concomitant]
     Active Substance: DULOXETINE
     Indication: DEPRESSION
     Dosage: 30MG
     Route: 048
     Dates: start: 20190826
  8. VENTOLINE [Concomitant]
     Active Substance: ALBUTEROL
     Indication: BRONCHOSPASM
     Dosage: STRENGTH: 0.1MG / DOSE,0.2 DOSAGE FORMS
     Route: 055
     Dates: start: 20200407
  9. MOVICOL [Concomitant]
     Active Substance: POLYETHYLENE GLYCOL 3350\POTASSIUM CHLORIDE\SODIUM BICARBONATE\SODIUM CHLORIDE
     Indication: CONSTIPATION
     Dosage: STRENGTH: UNKNOWN,1 DOSAGE FORMS
     Route: 048
     Dates: start: 20170602
  10. PANODIL [Concomitant]
     Active Substance: ACETAMINOPHEN
     Indication: PAIN
     Dosage: DOSAGE: VARYING
     Route: 048
     Dates: start: 20180302
  11. ELIQUIS [Concomitant]
     Active Substance: APIXABAN
     Indication: THROMBOSIS PROPHYLAXIS
     Dosage: 5MG
     Route: 048
     Dates: start: 20200327
  12. MULTIVITAMIN [Concomitant]
     Active Substance: VITAMINS
     Indication: VITAMIN SUPPLEMENTATION
     Dosage: STRENGTH: UNKNOWN,1 DOSAGE FORMS,START DATE UNKNOWN, BUT AT LEAST SINCE APR2019
     Route: 048
  13. ATENOLOL. [Suspect]
     Active Substance: ATENOLOL
     Indication: HYPERTENSION
     Dosage: 50 MG,PAUSED ON MARCH 25, 2020 AND RESTARTED ON APRIL 8, 2020
     Route: 048
     Dates: start: 201709
  14. VITAMIN D [Concomitant]
     Active Substance: VITAMIN D NOS
     Indication: VITAMIN SUPPLEMENTATION
     Dosage: 25 MICROGRAM
     Route: 048
     Dates: start: 20190826
  15. NORVASC [Concomitant]
     Active Substance: AMLODIPINE BESYLATE
     Indication: HYPERTENSION
     Dosage: 5MG
     Route: 048
     Dates: start: 20180305
  16. METOCLOPRAMIDE. [Concomitant]
     Active Substance: METOCLOPRAMIDE
     Indication: NAUSEA
     Dosage: 10MG
     Route: 048
     Dates: start: 20180302
  17. TOILAX [Concomitant]
     Active Substance: BISACODYL
     Indication: CONSTIPATION
     Dosage: 10MG
     Route: 048
     Dates: start: 20170602
  18. OXYCONTIN [Concomitant]
     Active Substance: OXYCODONE HYDROCHLORIDE
     Indication: PAIN
     Dosage: STRENGTH 10MG TO MAR2020 THEN 5MG.2 DOSAGE FORMS
     Route: 048
     Dates: start: 20170602
  19. FURIX [Concomitant]
     Indication: DIURETIC THERAPY
     Dosage: DOSAGE: 2 TAB MORNING AND 1 TAB DINNER
     Route: 048
     Dates: start: 20170603
  20. METOPROLOL SUCCINATE. [Suspect]
     Active Substance: METOPROLOL SUCCINATE
     Indication: HYPERTENSION
     Dosage: 100 MG
     Route: 048
     Dates: start: 20200326, end: 20200408
  21. BALANCID NOVUM [Concomitant]
     Indication: GASTROOESOPHAGEAL REFLUX DISEASE
     Dosage: STRENGTH: 449MG + 104MG,1 DOSAGE FORMS
     Route: 048
     Dates: start: 20200326
  22. LOSARTAN. [Suspect]
     Active Substance: LOSARTAN
     Indication: HYPERTENSION
     Dosage: 100 MG,PAUSED ON APRIL 6, 2020 AND RESTARTED ON APRIL 8, 2020
     Route: 048
     Dates: start: 2009
  23. KALEORID [Concomitant]
     Active Substance: POTASSIUM CHLORIDE
     Indication: MINERAL SUPPLEMENTATION
     Dosage: 1500 MG
     Route: 048
     Dates: start: 20180222
  24. GANGIDEN [Concomitant]
     Indication: CONSTIPATION
     Dosage: STRENGTH: UNKNOWN,1 DOSAGE FORMS
     Route: 048
     Dates: start: 20180325

REACTIONS (2)
  - Fall [Unknown]
  - Dizziness [Recovering/Resolving]

NARRATIVE: CASE EVENT DATE: 2017
